FAERS Safety Report 7781343-0 (Version None)
Quarter: 2011Q3

REPORT INFORMATION
  Report Type: 
  Country: None (occurrence: None)
  Receive Date: 20110923
  Receipt Date: 20110914
  Transmission Date: 20111222
  Serious: Yes (Death, Hospitalization)
  Sender: FDA-Public Use
  Company Number: 2011000871

PATIENT
  Age: 70 Year
  Sex: Female

DRUGS (2)
  1. TARCEVA [Suspect]
     Indication: LUNG ADENOCARCINOMA
     Dosage: 150 MG, UID/QD, ORAL; 100 MG, UID/QD, ORAL
     Route: 048
     Dates: start: 20080701, end: 20081201
  2. TARCEVA [Suspect]
     Indication: LUNG ADENOCARCINOMA
     Dosage: 150 MG, UID/QD, ORAL; 100 MG, UID/QD, ORAL
     Route: 048
     Dates: start: 20090101, end: 20090601

REACTIONS (7)
  - CYSTITIS HAEMORRHAGIC [None]
  - MALAISE [None]
  - DIZZINESS [None]
  - RASH [None]
  - URINARY TRACT INFECTION [None]
  - DISEASE PROGRESSION [None]
  - ANAEMIA [None]
